FAERS Safety Report 15638240 (Version 1)
Quarter: 2018Q4

REPORT INFORMATION
  Report Type: Spontaneous
  Country: US (occurrence: US)
  Receive Date: 20181120
  Receipt Date: 20181120
  Transmission Date: 20190205
  Serious: No
  Sender: FDA-Public Use
  Company Number: US-JNJFOC-20180808129

PATIENT
  Sex: Male

DRUGS (13)
  1. POTASSIUM [Concomitant]
     Active Substance: POTASSIUM
  2. IMBRUVICA [Suspect]
     Active Substance: IBRUTINIB
     Indication: NON-HODGKIN^S LYMPHOMA
     Route: 065
     Dates: start: 20180523
  3. NORVASC [Concomitant]
     Active Substance: AMLODIPINE BESYLATE
  4. TYLENOL [Concomitant]
     Active Substance: ACETAMINOPHEN
  5. IMBRUVICA [Suspect]
     Active Substance: IBRUTINIB
     Indication: NON-HODGKIN^S LYMPHOMA
     Route: 065
     Dates: start: 20170627, end: 20180522
  6. FLOMAX [Concomitant]
     Active Substance: TAMSULOSIN HYDROCHLORIDE
  7. MIRALAX [Concomitant]
     Active Substance: POLYETHYLENE GLYCOL 3350
  8. VITAMIN B [Concomitant]
     Active Substance: VITAMIN B
  9. TESSALON [Concomitant]
     Active Substance: BENZONATATE
  10. ACYCLOVIR. [Concomitant]
     Active Substance: ACYCLOVIR
  11. LASIX [Concomitant]
     Active Substance: FUROSEMIDE
  12. COLACE [Concomitant]
     Active Substance: DOCUSATE SODIUM
  13. ALLOPURINOL. [Concomitant]
     Active Substance: ALLOPURINOL

REACTIONS (1)
  - Amnesia [Unknown]
